FAERS Safety Report 4268543-1 (Version None)
Quarter: 2004Q1

REPORT INFORMATION
  Report Type: 
  Country: None (occurrence: None)
  Receive Date: 20040109
  Receipt Date: 20040109
  Transmission Date: 20041129
  Serious: No
  Sender: FDA-Public Use
  Company Number: None

PATIENT
  Sex: Male
  Weight: 77.1115 kg

DRUGS (1)
  1. VIGAMOX [Suspect]
     Indication: KERATITIS
     Dosage: 1 GTT OD QID OR MORE

REACTIONS (4)
  - FUNGAL TEST POSITIVE [None]
  - KERATITIS HERPETIC [None]
  - MEDICATION ERROR [None]
  - PHARMACEUTICAL PRODUCT COMPLAINT [None]
